FAERS Safety Report 11242726 (Version 3)
Quarter: 2015Q4

REPORT INFORMATION
  Report Type: Report from Study
  Country: NL (occurrence: NL)
  Receive Date: 20150707
  Receipt Date: 20151028
  Transmission Date: 20160304
  Serious: Yes (Hospitalization)
  Sender: FDA-Public Use
  Company Number: PHHO2015NL011254

PATIENT
  Age: 56 Year
  Sex: Female
  Weight: 56.6 kg

DRUGS (3)
  1. SOM230 [Suspect]
     Active Substance: PASIREOTIDE
     Indication: NEUROENDOCRINE CARCINOMA
     Dosage: 60 MG, QMO
     Route: 030
     Dates: start: 20140828
  2. AFINITOR [Suspect]
     Active Substance: EVEROLIMUS
     Indication: NEUROENDOCRINE CARCINOMA
     Dosage: 10 MG, QD
     Route: 048
     Dates: start: 20140825
  3. METFORMINE [Concomitant]
     Active Substance: METFORMIN HYDROCHLORIDE
     Indication: HYPERGLYCAEMIA
     Dosage: 250 MG, BID
     Route: 048
     Dates: start: 20150409

REACTIONS (1)
  - Hyperglycaemia [Not Recovered/Not Resolved]

NARRATIVE: CASE EVENT DATE: 20150622
